FAERS Safety Report 17225244 (Version 1)
Quarter: 2020Q1

REPORT INFORMATION
  Report Type: Spontaneous
  Country: US (occurrence: US)
  Receive Date: 20200101
  Receipt Date: 20200101
  Transmission Date: 20200409
  Serious: No
  Sender: FDA-Public Use
  Company Number: None

PATIENT
  Age: 28 Year
  Sex: Male
  Weight: 99 kg

DRUGS (3)
  1. ANDROGEL 1.62% ESTOSTERONE [Concomitant]
  2. LATUDA [Suspect]
     Active Substance: LURASIDONE HYDROCHLORIDE
  3. LEXAPRO 10MG LATUDA 60MG [Concomitant]

REACTIONS (4)
  - Depression [None]
  - Blood cholesterol increased [None]
  - Fatigue [None]
  - Blood testosterone decreased [None]
